FAERS Safety Report 6131217-6 (Version None)
Quarter: 2009Q1

REPORT INFORMATION
  Report Type: 
  Country: None (occurrence: None)
  Receive Date: 20090325
  Receipt Date: 20090317
  Transmission Date: 20090719
  Serious: Yes (Disabling)
  Sender: FDA-Public Use
  Company Number: GB-ELI_LILLY_AND_COMPANY-GB200802005527

PATIENT
  Age: 35 Year
  Sex: Female

DRUGS (4)
  1. FLUOXETINE HCL [Suspect]
     Dosage: 10 MG, DAILY (1/D)
     Dates: start: 20070801, end: 20070101
  2. FLUOXETINE HCL [Suspect]
     Dosage: 20 MG, DAILY (1/D)
     Dates: start: 20070901
  3. REMERON [Concomitant]
     Dosage: 15 MG, DAILY (1/D)
     Route: 048
     Dates: start: 20070301, end: 20070401
  4. REMERON [Concomitant]
     Dosage: 30 MG, DAILY (1/D)
     Route: 048
     Dates: start: 20070401

REACTIONS (3)
  - ANXIETY [None]
  - DEPRESSION [None]
  - DRUG INEFFECTIVE [None]
